FAERS Safety Report 7104813-7 (Version None)
Quarter: 2010Q4

REPORT INFORMATION
  Report Type: 
  Country: None (occurrence: None)
  Receive Date: 20101109
  Receipt Date: 20101025
  Transmission Date: 20110411
  Serious: Yes (Life-Threatening, Hospitalization, Congenital Anomaly)
  Sender: FDA-Public Use
  Company Number: DSM-2010-01575

PATIENT
  Sex: Male
  Weight: 2.51 kg

DRUGS (2)
  1. OLMESARTAN MEDOXOMIL [Suspect]
     Indication: DRUG EXPOSURE DURING PREGNANCY
     Dosage: TRANSPLACENTAL
     Route: 064
  2. CARBAMAZEPINE [Concomitant]

REACTIONS (15)
  - ANURIA [None]
  - CAESAREAN SECTION [None]
  - CIRCULATORY COLLAPSE [None]
  - DEATH NEONATAL [None]
  - FIBROUS DYSPLASIA OF BONE [None]
  - HAND DEFORMITY [None]
  - HYPOTENSION [None]
  - ILEAL PERFORATION [None]
  - KIDNEY MALFORMATION [None]
  - MATERNAL DRUGS AFFECTING FOETUS [None]
  - MECONIUM PLUG SYNDROME [None]
  - PREMATURE BABY [None]
  - PULMONARY MALFORMATION [None]
  - RENAL FAILURE [None]
  - SKULL MALFORMATION [None]
